FAERS Safety Report 15868151 (Version 2)
Quarter: 2019Q3

REPORT INFORMATION
  Report Type: Spontaneous
  Country: US (occurrence: US)
  Receive Date: 20190125
  Receipt Date: 20190702
  Transmission Date: 20191004
  Serious: Yes (Other)
  Sender: FDA-Public Use
  Company Number: US-LEXICON PHARMACEUTICALS, INC-19-1606-00011

PATIENT
  Sex: Female

DRUGS (2)
  1. LOMOTIL [Concomitant]
     Active Substance: ATROPINE SULFATE\DIPHENOXYLATE HYDROCHLORIDE
  2. TELOTRISTAT ETHYL [Suspect]
     Active Substance: TELOTRISTAT ETHYL
     Indication: CARCINOID TUMOUR OF THE DUODENUM
     Route: 048
     Dates: start: 20181210

REACTIONS (7)
  - Anaemia [Unknown]
  - Rectal haemorrhage [Not Recovered/Not Resolved]
  - Diarrhoea [Unknown]
  - Abdominal pain [Not Recovered/Not Resolved]
  - Headache [Unknown]
  - Haemorrhoids [Not Recovered/Not Resolved]
  - Back pain [Unknown]
